FAERS Safety Report 5588488-4 (Version None)
Quarter: 2008Q1

REPORT INFORMATION
  Report Type: 
  Country: None (occurrence: None)
  Receive Date: 20080111
  Receipt Date: 20080102
  Transmission Date: 20080703
  Serious: Yes (Other)
  Sender: FDA-Public Use
  Company Number: GB-ROCHE-539587

PATIENT
  Age: 61 Year
  Sex: Male
  Weight: 134.5 kg

DRUGS (2)
  1. ORLISTAT [Suspect]
     Indication: OBESITY
     Route: 048
     Dates: start: 20070608
  2. UNSPECIFIED MEDICATIONS [Concomitant]

REACTIONS (1)
  - CORONARY ARTERY BYPASS [None]
